FAERS Safety Report 15820334 (Version 1)
Quarter: 2019Q1

REPORT INFORMATION
  Report Type: Spontaneous
  Country: US (occurrence: US)
  Receive Date: 20190111
  Receipt Date: 20190111
  Transmission Date: 20190417
  Serious: Yes (Hospitalization)
  Sender: FDA-Public Use
  Company Number: None

PATIENT
  Age: 12 Year
  Sex: Male

DRUGS (3)
  1. CREON [Concomitant]
     Active Substance: PANCRELIPASE AMYLASE\PANCRELIPASE LIPASE\PANCRELIPASE PROTEASE
  2. VYVANSE [Concomitant]
     Active Substance: LISDEXAMFETAMINE DIMESYLATE
  3. PREVACID SOLUTAB [Suspect]
     Active Substance: LANSOPRAZOLE
     Indication: CYSTIC FIBROSIS
     Route: 048
     Dates: start: 20130813

REACTIONS (1)
  - Infective pulmonary exacerbation of cystic fibrosis [None]
